FAERS Safety Report 21602039 (Version 1)
Quarter: 2022Q4

REPORT INFORMATION
  Report Type: Spontaneous
  Country: US (occurrence: None)
  Receive Date: 20221115
  Receipt Date: 20221115
  Transmission Date: 20230113
  Serious: No
  Sender: FDA-Public Use
  Company Number: None

PATIENT
  Age: 28 Year
  Sex: Male
  Weight: 88.9 kg

DRUGS (1)
  1. BEBTELOVIMAB [Suspect]
     Active Substance: BEBTELOVIMAB

REACTIONS (5)
  - Erythema [None]
  - Hypoxia [None]
  - Oxygen saturation decreased [None]
  - Tachycardia [None]
  - Hypersensitivity [None]

NARRATIVE: CASE EVENT DATE: 20221112
